FAERS Safety Report 24036555 (Version 1)
Quarter: 2024Q2

REPORT INFORMATION
  Report Type: Spontaneous
  Country: US (occurrence: None)
  Receive Date: 20240630
  Receipt Date: 20240630
  Transmission Date: 20240715
  Serious: Yes (Other)
  Sender: FDA-Public Use
  Company Number: None

PATIENT
  Age: 39 Year
  Sex: Female

DRUGS (1)
  1. XARELTO [Suspect]
     Active Substance: RIVAROXABAN
     Indication: Thrombosis prophylaxis
     Dosage: 10 MG DAILY ORAL?
     Route: 048
     Dates: start: 20240601, end: 20240604

REACTIONS (2)
  - Abdominal operation [None]
  - Vaginal haemorrhage [None]

NARRATIVE: CASE EVENT DATE: 20240604
